FAERS Safety Report 23154540 (Version 4)
Quarter: 2024Q1

REPORT INFORMATION
  Report Type: Spontaneous
  Country: US (occurrence: US)
  Receive Date: 20231107
  Receipt Date: 20240207
  Transmission Date: 20240410
  Serious: Yes (Other)
  Sender: FDA-Public Use
  Company Number: US-BRISTOL-MYERS SQUIBB COMPANY-2023-156972

PATIENT
  Age: 68 Year
  Sex: Female

DRUGS (2)
  1. LENALIDOMIDE [Suspect]
     Active Substance: LENALIDOMIDE
     Indication: Plasma cell myeloma
     Dosage: TAKE 1 CAPSULE BY MOUTH EVERY DAY FOR 21 DAYS
     Route: 048
  2. LENALIDOMIDE [Suspect]
     Active Substance: LENALIDOMIDE
     Dosage: TAKE 1 CAPSULE BY MOUTH EVERY DAY FOR 21 DAYS
     Route: 048
     Dates: start: 20230801

REACTIONS (6)
  - Pruritus [Recovered/Resolved]
  - Erythema [Recovered/Resolved]
  - Neuropathy peripheral [Not Recovered/Not Resolved]
  - Fatigue [Recovering/Resolving]
  - Pain [Not Recovered/Not Resolved]
  - Constipation [Not Recovered/Not Resolved]
